FAERS Safety Report 7131643-2 (Version None)
Quarter: 2010Q4

REPORT INFORMATION
  Report Type: 
  Country: None (occurrence: None)
  Receive Date: 20101201
  Receipt Date: 20101126
  Transmission Date: 20110411
  Serious: Yes (Other)
  Sender: FDA-Public Use
  Company Number: GB-PFIZER INC-2010158962

PATIENT
  Age: 23 Year
  Sex: Female

DRUGS (5)
  1. SERTRALINE HYDROCHLORIDE [Suspect]
     Indication: ANXIETY
     Dosage: 50 MG, UNK
     Route: 048
     Dates: start: 20101105, end: 20101106
  2. SERTRALINE HYDROCHLORIDE [Suspect]
     Indication: DEPRESSION
  3. CLEXANE [Concomitant]
     Indication: LYMPHOEDEMA
     Dosage: 40 MG, UNK
     Route: 058
  4. CODEINE [Concomitant]
  5. GAVISCON [Concomitant]

REACTIONS (9)
  - AGITATION [None]
  - HEADACHE [None]
  - INSOMNIA [None]
  - JOINT STIFFNESS [None]
  - MYDRIASIS [None]
  - NAUSEA [None]
  - PUPILLARY REFLEX IMPAIRED [None]
  - RESTLESSNESS [None]
  - VOMITING [None]
